FAERS Safety Report 22685814 (Version 4)
Quarter: 2024Q1

REPORT INFORMATION
  Report Type: Other
  Country: US (occurrence: None)
  Receive Date: 20230710
  Receipt Date: 20240119
  Transmission Date: 20240409
  Serious: Yes (Hospitalization)
  Sender: FDA-Public Use
  Company Number: US-ROCHE-1890387

PATIENT
  Sex: Female

DRUGS (15)
  1. CELLCEPT [Suspect]
     Active Substance: MYCOPHENOLATE MOFETIL
     Indication: Noninfective chorioretinitis
     Route: 048
  2. CELLCEPT [Suspect]
     Active Substance: MYCOPHENOLATE MOFETIL
     Indication: Retinal vasculitis
     Dosage: TAKE 3 TAB IN AM AND 2 TAB IN PM
     Route: 048
  3. CELLCEPT [Suspect]
     Active Substance: MYCOPHENOLATE MOFETIL
     Indication: Cyclitis
     Route: 048
  4. CELLCEPT [Suspect]
     Active Substance: MYCOPHENOLATE MOFETIL
     Indication: Uveitis
     Route: 048
     Dates: start: 20210819
  5. CELLCEPT [Suspect]
     Active Substance: MYCOPHENOLATE MOFETIL
     Indication: Iridocyclitis
     Dosage: 3 TABS PO QAM
     Route: 048
  6. CELLCEPT [Suspect]
     Active Substance: MYCOPHENOLATE MOFETIL
     Indication: Noninfective chorioretinitis
     Dosage: 2 TABS PO QPM
     Route: 048
  7. BILBERRY [Concomitant]
     Active Substance: BILBERRY
     Route: 048
     Dates: start: 20210819
  8. TAURINE [Concomitant]
     Active Substance: TAURINE
     Route: 048
     Dates: start: 20210819
  9. MAGNESIUM [Concomitant]
     Active Substance: MAGNESIUM
     Route: 048
     Dates: start: 20210819
  10. NIACIN [Concomitant]
     Active Substance: NIACIN
     Route: 048
     Dates: start: 20210819
  11. HERBALS\TURMERIC [Concomitant]
     Active Substance: HERBALS\TURMERIC
     Route: 048
     Dates: start: 20210819
  12. FISH OIL [Concomitant]
     Active Substance: FISH OIL
     Dosage: CVS
     Route: 048
     Dates: start: 20210819
  13. LISINOPRIL [Concomitant]
     Active Substance: LISINOPRIL
     Route: 048
     Dates: start: 20210819
  14. METOPROLOL SUCCINATE [Concomitant]
     Active Substance: METOPROLOL SUCCINATE
     Dates: start: 20210716
  15. FISH OIL\OMEGA-3 FATTY ACIDS [Concomitant]
     Active Substance: FISH OIL\OMEGA-3 FATTY ACIDS

REACTIONS (4)
  - Pneumonia [Unknown]
  - COVID-19 [Unknown]
  - Muscle strain [Unknown]
  - Off label use [Unknown]
